FAERS Safety Report 15830974 (Version 1)
Quarter: 2018Q4

REPORT INFORMATION
  Report Type: Spontaneous
  Country: US (occurrence: US)
  Receive Date: 20181218
  Receipt Date: 20181218
  Transmission Date: 20190205
  Serious: No
  Sender: FDA-Public Use
  Company Number: None

PATIENT
  Age: 69 Year
  Sex: Female

DRUGS (1)
  1. SPRYCEL [Suspect]
     Active Substance: DASATINIB
     Indication: CHRONIC MYELOID LEUKAEMIA
     Route: 048
     Dates: start: 201201

REACTIONS (5)
  - Sensitivity of teeth [None]
  - Pleural effusion [None]
  - Gingival erosion [None]
  - Pericardial effusion [None]
  - Dyspnoea [None]

NARRATIVE: CASE EVENT DATE: 20180118
